FAERS Safety Report 6408804-0 (Version None)
Quarter: 2009Q4

REPORT INFORMATION
  Report Type: 
  Country: None (occurrence: None)
  Receive Date: 20091021
  Receipt Date: 20091015
  Transmission Date: 20100525
  Serious: Yes (Other)
  Sender: FDA-Public Use
  Company Number: B0596053A

PATIENT
  Sex: Female
  Weight: 40 kg

DRUGS (2)
  1. RELENZA [Suspect]
     Indication: INFLUENZA
     Dosage: 10MG TWICE PER DAY
     Route: 055
     Dates: start: 20090927, end: 20091001
  2. CALONAL [Concomitant]
     Dosage: 300MG PER DAY
     Route: 048

REACTIONS (3)
  - ORAL PAIN [None]
  - STOMATITIS [None]
  - WEIGHT DECREASED [None]
